FAERS Safety Report 22056672 (Version 1)
Quarter: 2023Q1

REPORT INFORMATION
  Report Type: Spontaneous
  Country: ES (occurrence: ES)
  Receive Date: 20230302
  Receipt Date: 20230302
  Transmission Date: 20230418
  Serious: Yes (Other)
  Sender: FDA-Public Use
  Company Number: None

PATIENT
  Age: 59 Year
  Sex: Male
  Weight: 110 kg

DRUGS (3)
  1. RILAST [BUDESONIDE;FORMOTEROL FUMARATE] [Concomitant]
     Indication: Asthma
     Dosage: 60 MICROGRAMOS/4.5 MICROGRAMOS/INHALATION
     Route: 055
     Dates: start: 20160511
  2. METFORMIN HYDROCHLORIDE [Concomitant]
     Active Substance: METFORMIN HYDROCHLORIDE
     Indication: Type 2 diabetes mellitus
     Dosage: 850 MG
     Route: 048
     Dates: start: 20221125
  3. RYBELSUS [Suspect]
     Active Substance: SEMAGLUTIDE
     Indication: Type 2 diabetes mellitus
     Dosage: UNK
     Route: 048
     Dates: start: 20221129, end: 20221210

REACTIONS (2)
  - Vision blurred [Recovered/Resolved]
  - Abdominal pain upper [Recovered/Resolved]

NARRATIVE: CASE EVENT DATE: 20221130
